FAERS Safety Report 24614924 (Version 3)
Quarter: 2025Q3

REPORT INFORMATION
  Report Type: Report from Study
  Country: RU (occurrence: RU)
  Receive Date: 20241113
  Receipt Date: 20250803
  Transmission Date: 20251021
  Serious: Yes (Other)
  Sender: ALEXION PHARMACEUTICALS
  Company Number: RU-AstraZeneca-CH-00736824A

PATIENT
  Age: 12 Year
  Weight: 50 kg

DRUGS (1)
  1. SELUMETINIB [Suspect]
     Active Substance: SELUMETINIB
     Indication: Neurofibroma
     Dosage: 30 MILLIGRAM, Q12H
     Dates: start: 20211113

REACTIONS (4)
  - Alopecia [Recovered/Resolved]
  - Rash [Recovered/Resolved]
  - Paronychia [Recovered/Resolved]
  - Blood creatine phosphokinase increased [Not Recovered/Not Resolved]

NARRATIVE: CASE EVENT DATE: 20211120
